FAERS Safety Report 10044041 (Version 2)
Quarter: 2014Q1

REPORT INFORMATION
  Report Type: Spontaneous
  Country: US (occurrence: US)
  Receive Date: 20140328
  Receipt Date: 20140328
  Transmission Date: 20141002
  Serious: No
  Sender: FDA-Public Use
  Company Number: US-MYLANLABS-2013S1020129

PATIENT
  Sex: Female
  Weight: 83.01 kg

DRUGS (5)
  1. EMSAM (SELEGILINE TRANSDERMAL SYSTEM) [Suspect]
     Indication: DEPRESSION
     Dosage: CHANGE DAILY
     Route: 062
     Dates: start: 20130829, end: 20130904
  2. NEXIUM [Concomitant]
     Indication: GASTROOESOPHAGEAL REFLUX DISEASE
  3. MOBIC [Concomitant]
  4. KLONOPIN [Concomitant]
     Indication: ANXIETY
  5. RESTORIL [Concomitant]
     Indication: INSOMNIA

REACTIONS (2)
  - Abdominal pain [Not Recovered/Not Resolved]
  - Dyspepsia [Not Recovered/Not Resolved]
